FAERS Safety Report 9447726 (Version 1)
Quarter: 2013Q3

REPORT INFORMATION
  Report Type: Spontaneous
  Country: FR (occurrence: None)
  Receive Date: 20130805
  Receipt Date: 20130805
  Transmission Date: 20140515
  Serious: Yes (Hospitalization)
  Sender: FDA-Public Use
  Company Number: 1754143

PATIENT
  Age: 74 Year
  Sex: Female

DRUGS (8)
  1. CARBOPLATIN [Suspect]
     Indication: PRODUCT USED FOR UNKNOWN INDICATION
     Dates: start: 20120802
  2. PACLITAXEL [Concomitant]
  3. METFORMINE [Concomitant]
  4. DIAMICRON [Concomitant]
  5. CRESTOR [Concomitant]
  6. LEVOTHYROX [Concomitant]
  7. LYSANXIA [Concomitant]
  8. SOLUPRED /00016201/ [Concomitant]

REACTIONS (8)
  - Renal failure acute [None]
  - Fall [None]
  - Metabolic acidosis [None]
  - Renal tubular necrosis [None]
  - Sepsis [None]
  - Continuous haemodiafiltration [None]
  - Asthenia [None]
  - Diet refusal [None]
